FAERS Safety Report 16557308 (Version 3)
Quarter: 2019Q4

REPORT INFORMATION
  Report Type: Spontaneous
  Country: CA (occurrence: CA)
  Receive Date: 20190711
  Receipt Date: 20191122
  Transmission Date: 20200122
  Serious: Yes (Death)
  Sender: FDA-Public Use
  Company Number: CA-PFIZER INC-2019297932

PATIENT
  Sex: Male

DRUGS (13)
  1. DICLOFENAC [Suspect]
     Active Substance: DICLOFENAC
     Dosage: UNK
     Route: 061
  2. FUROSEMIDE. [Suspect]
     Active Substance: FUROSEMIDE
     Dosage: 20 MG, UNK
     Route: 065
  3. BETADERM [Concomitant]
     Active Substance: BETAMETHASONE VALERATE
     Dosage: UNK
     Route: 065
  4. PROTOPIC [Concomitant]
     Active Substance: TACROLIMUS
     Dosage: UNK
     Route: 065
  5. METHOTREXATE SODIUM. [Suspect]
     Active Substance: METHOTREXATE SODIUM
     Dosage: UNK
     Route: 065
  6. SULFASALAZINE. [Concomitant]
     Active Substance: SULFASALAZINE
     Dosage: UNK
     Route: 065
  7. PANTOPRAZOLE [Suspect]
     Active Substance: PANTOPRAZOLE
     Dosage: 40 MILLIGRAM, BID
     Route: 065
  8. DICLOFENAC [Suspect]
     Active Substance: DICLOFENAC
     Dosage: UNK
     Route: 065
  9. LEFLUNOMIDE. [Suspect]
     Active Substance: LEFLUNOMIDE
     Dosage: UNK
     Route: 065
  10. AMCINONIDE. [Concomitant]
     Active Substance: AMCINONIDE
     Dosage: UNK
     Route: 065
  11. SALBUTAMOL [Concomitant]
     Active Substance: ALBUTEROL
     Dosage: UNK
     Route: 065
  12. SPIRONOLACTONE. [Concomitant]
     Active Substance: SPIRONOLACTONE
     Dosage: 50 MG, 2X/DAY
     Route: 065
  13. HYDROXYCHLOROQUINE [Concomitant]
     Active Substance: HYDROXYCHLOROQUINE
     Dosage: UNK
     Route: 065

REACTIONS (1)
  - Death [Fatal]
